FAERS Safety Report 5028559-4 (Version None)
Quarter: 2006Q2

REPORT INFORMATION
  Report Type: 
  Country: None (occurrence: None)
  Receive Date: 20060616
  Receipt Date: 20060616
  Transmission Date: 20061013
  Serious: No
  Sender: FDA-Public Use
  Company Number: None

PATIENT
  Sex: Female
  Weight: 104.3273 kg

DRUGS (1)
  1. LAMISIL AT [Suspect]
     Indication: TINEA PEDIS
     Dosage: THIN LAYER TO AFFECTED AREA   BID   TOP
     Route: 061
     Dates: start: 20060610, end: 20060614

REACTIONS (3)
  - DERMATITIS CONTACT [None]
  - PHOTOSENSITIVITY REACTION [None]
  - POOR QUALITY DRUG ADMINISTERED [None]
